FAERS Safety Report 21509786 (Version 1)
Quarter: 2022Q4

REPORT INFORMATION
  Report Type: Spontaneous
  Country: US (occurrence: None)
  Receive Date: 20221026
  Receipt Date: 20221026
  Transmission Date: 20230113
  Serious: Yes (unspecified)
  Sender: FDA-Public Use
  Company Number: None

PATIENT
  Age: 52 Year
  Sex: Female

DRUGS (1)
  1. TRASTUZUMAB-QYYP [Suspect]
     Active Substance: TRASTUZUMAB-QYYP

REACTIONS (4)
  - Chills [None]
  - Nausea [None]
  - Retching [None]
  - Infusion related reaction [None]

NARRATIVE: CASE EVENT DATE: 20220908
